FAERS Safety Report 5528538-4 (Version None)
Quarter: 2007Q4

REPORT INFORMATION
  Report Type: 
  Country: None (occurrence: None)
  Receive Date: 20071128
  Receipt Date: 20071119
  Transmission Date: 20080405
  Serious: Yes (Other)
  Sender: FDA-Public Use
  Company Number: JP-ABBOTT-07P-087-0425120-00

PATIENT
  Age: 60 Year
  Sex: Female

DRUGS (5)
  1. CEFZON [Suspect]
     Indication: INFECTION PROPHYLAXIS
     Route: 048
     Dates: start: 20071104, end: 20071105
  2. CEFZON [Suspect]
     Route: 048
     Dates: start: 20071103, end: 20071103
  3. CEFAZOLIN [Suspect]
     Indication: INFECTION PROPHYLAXIS
     Route: 042
     Dates: start: 20071103, end: 20071103
  4. CEFAZOLIN [Suspect]
     Route: 042
     Dates: start: 20071101, end: 20071101
  5. CEFAZOLIN [Suspect]
     Route: 042
     Dates: start: 20071102, end: 20071102

REACTIONS (2)
  - ENDOPHTHALMITIS [None]
  - RASH [None]
